FAERS Safety Report 4632967-0 (Version None)
Quarter: 2005Q2

REPORT INFORMATION
  Report Type: 
  Country: None (occurrence: None)
  Receive Date: 20050412
  Receipt Date: 20050401
  Transmission Date: 20051028
  Serious: Yes (Life-Threatening, Hospitalization, Disabling)
  Sender: FDA-Public Use
  Company Number: US-MERCK-0504USA00262

PATIENT
  Age: 40 Year
  Sex: Male

DRUGS (4)
  1. VIOXX [Suspect]
     Indication: JOINT INJURY
     Route: 048
     Dates: start: 20000101, end: 20001027
  2. VIOXX [Suspect]
     Route: 048
     Dates: start: 20020101
  3. IMDUR [Concomitant]
     Route: 065
  4. [THERAPY UNSPECIFIED] [Concomitant]
     Route: 065

REACTIONS (3)
  - FALL [None]
  - HEART RATE IRREGULAR [None]
  - MYOCARDIAL INFARCTION [None]
